FAERS Safety Report 8044269-3 (Version None)
Quarter: 2012Q1

REPORT INFORMATION
  Report Type: 
  Country: None (occurrence: None)
  Receive Date: 20120113
  Receipt Date: 20120111
  Transmission Date: 20120608
  Serious: Yes (Death)
  Sender: FDA-Public Use
  Company Number: US-CELGENEUS-163-21880-11121028

PATIENT
  Sex: Female

DRUGS (9)
  1. CALCIUM 500 [Concomitant]
     Route: 065
  2. REVLIMID [Suspect]
     Dosage: 15 MILLIGRAM
     Route: 048
     Dates: start: 20100129
  3. MORPHINE SULFATE [Concomitant]
  4. VITAMIN E COMPLETE [Concomitant]
     Route: 065
  5. MULTIVITAMIN/IRON [Concomitant]
     Route: 065
  6. LEVOTHYROXINE SODIUM [Concomitant]
     Route: 065
  7. LORTAB [Concomitant]
  8. VITAMIN D [Concomitant]
     Route: 065
  9. LYRICA [Concomitant]

REACTIONS (1)
  - MYOCARDIAL INFARCTION [None]
